FAERS Safety Report 7613264-8 (Version None)
Quarter: 2011Q3

REPORT INFORMATION
  Report Type: 
  Country: None (occurrence: None)
  Receive Date: 20110708
  Receipt Date: 20110628
  Transmission Date: 20111222
  Serious: Yes (Other)
  Sender: FDA-Public Use
  Company Number: US-ACCORD-009539

PATIENT
  Age: 41 Year
  Sex: Male

DRUGS (6)
  1. VINCRISTINE [Suspect]
     Indication: PERIPHERAL T-CELL LYMPHOMA UNSPECIFIED
  2. DOXORUBICIN HCL [Suspect]
     Indication: PERIPHERAL T-CELL LYMPHOMA UNSPECIFIED
  3. CYCLOPHOSPHAMIDE [Suspect]
     Indication: PERIPHERAL T-CELL LYMPHOMA UNSPECIFIED
  4. ETOPOSIDE [Suspect]
     Indication: PERIPHERAL T-CELL LYMPHOMA UNSPECIFIED
  5. PREDNISONE [Suspect]
     Indication: PERIPHERAL T-CELL LYMPHOMA UNSPECIFIED
  6. VORICONAZOLE [Suspect]
     Indication: ANTIFUNGAL TREATMENT

REACTIONS (5)
  - DRUG INTERACTION [None]
  - HYPOAESTHESIA [None]
  - DRUG CLEARANCE DECREASED [None]
  - PARAESTHESIA [None]
  - DRUG HALF-LIFE INCREASED [None]
